FAERS Safety Report 17965808 (Version 1)
Quarter: 2020Q2

REPORT INFORMATION
  Report Type: Spontaneous
  Country: US (occurrence: US)
  Receive Date: 20200630
  Receipt Date: 20200630
  Transmission Date: 20200714
  Serious: Yes (Other)
  Sender: FDA-Public Use
  Company Number: US-ALLERGAN-2024794US

PATIENT

DRUGS (1)
  1. SUCRALFATE UNK [Suspect]
     Active Substance: SUCRALFATE
     Indication: PYLOROMYOTOMY
     Dosage: UNK, QID
     Route: 065

REACTIONS (3)
  - Treatment noncompliance [Unknown]
  - Gastrointestinal haemorrhage [Unknown]
  - Off label use [Unknown]
